FAERS Safety Report 8207354-9 (Version None)
Quarter: 2012Q1

REPORT INFORMATION
  Report Type: 
  Country: None (occurrence: None)
  Receive Date: 20120314
  Receipt Date: 20120123
  Transmission Date: 20120608
  Serious: No
  Sender: FDA-Public Use
  Company Number: US-GLAXOSMITHKLINE-A0962689A

PATIENT
  Age: 46 Year
  Sex: Female

DRUGS (2)
  1. NICORETTE [Suspect]
     Indication: EX-TOBACCO USER
     Dates: start: 20111016
  2. NICORETTE (MINT) [Suspect]
     Indication: EX-TOBACCO USER
     Dates: start: 20111016

REACTIONS (5)
  - EXPIRED DRUG ADMINISTERED [None]
  - NICOTINE DEPENDENCE [None]
  - CRYING [None]
  - DRUG ADMINISTRATION ERROR [None]
  - ANXIETY [None]
